FAERS Safety Report 14246912 (Version 1)
Quarter: 2017Q4

REPORT INFORMATION
  Report Type: Spontaneous
  Country: US (occurrence: None)
  Receive Date: 20171201
  Receipt Date: 20171201
  Transmission Date: 20180321
  Serious: No
  Sender: FDA-Public Use
  Company Number: None

PATIENT
  Age: 66 Year
  Sex: Male

DRUGS (9)
  1. MULTIPLE VIT [Concomitant]
  2. SIMPONI [Suspect]
     Active Substance: GOLIMUMAB
     Indication: PSORIASIS
     Route: 058
     Dates: start: 20170809
  3. POTASSIUM [Concomitant]
     Active Substance: POTASSIUM
  4. PREDNISONE. [Concomitant]
     Active Substance: PREDNISONE
  5. VITAMIN B6 [Concomitant]
     Active Substance: PYRIDOXINE HYDROCHLORIDE
  6. LISINOPRIL. [Concomitant]
     Active Substance: LISINOPRIL
  7. HYDROCHLOROT [Concomitant]
     Active Substance: HYDROCHLOROTHIAZIDE
  8. ASPIRIN. [Concomitant]
     Active Substance: ASPIRIN
  9. FOLIC ACID. [Concomitant]
     Active Substance: FOLIC ACID

REACTIONS (1)
  - Anxiety [None]

NARRATIVE: CASE EVENT DATE: 20171112
